FAERS Safety Report 23499391 (Version 2)
Quarter: 2024Q4

REPORT INFORMATION
  Report Type: Spontaneous
  Country: US (occurrence: US)
  Receive Date: 20240208
  Receipt Date: 20241212
  Transmission Date: 20250114
  Serious: No
  Sender: SANOFI AVENTIS
  Company Number: US-SA-SAC20240203000411

PATIENT
  Age: 20 Year
  Sex: Female

DRUGS (3)
  1. DUPIXENT [Suspect]
     Active Substance: DUPILUMAB
     Indication: Eczema
     Dosage: 300 MG, QOW
     Route: 058
     Dates: start: 202312
  2. DUPIXENT [Suspect]
     Active Substance: DUPILUMAB
     Indication: Dermatitis atopic
     Dosage: 300 MG, QOW
     Route: 058
  3. KETAMINE [Suspect]
     Active Substance: KETAMINE
     Dosage: UNK
     Dates: start: 20231220

REACTIONS (11)
  - Injection site pain [Recovered/Resolved]
  - Injection site swelling [Unknown]
  - Nasal congestion [Unknown]
  - Panic attack [Recovered/Resolved]
  - Wisdom teeth removal [Unknown]
  - Food poisoning [Recovered/Resolved]
  - Unwanted awareness during anaesthesia [Unknown]
  - Vomiting [Unknown]
  - Nasopharyngitis [Unknown]
  - Rash [Unknown]
  - Dermatitis atopic [Unknown]

NARRATIVE: CASE EVENT DATE: 20231220
